FAERS Safety Report 7197455-9 (Version None)
Quarter: 2010Q4

REPORT INFORMATION
  Report Type: 
  Country: None (occurrence: None)
  Receive Date: 20101227
  Receipt Date: 20101221
  Transmission Date: 20110411
  Serious: Yes (Life-Threatening, Hospitalization)
  Sender: FDA-Public Use
  Company Number: JP-BRISTOL-MYERS SQUIBB COMPANY-15448103

PATIENT
  Age: 45 Year
  Sex: Female

DRUGS (4)
  1. AVAPRO [Suspect]
     Indication: HYPERTENSION
     Route: 048
     Dates: start: 20101016, end: 20101101
  2. AMLODIN [Concomitant]
     Route: 048
     Dates: start: 20100401
  3. CARTEOLOL HYDROCHLORIDE [Concomitant]
     Dosage: MIKELAN LA
  4. CHONDROITIN SULFATE + GLUCOSAMINE [Concomitant]
     Dosage: DURATION OF THERAPY:2-3 DAYS
     Dates: start: 20101018

REACTIONS (2)
  - LUNG DISORDER [None]
  - RESPIRATORY FAILURE [None]
